FAERS Safety Report 16078384 (Version 1)
Quarter: 2019Q1

REPORT INFORMATION
  Report Type: Spontaneous
  Country: US (occurrence: US)
  Receive Date: 20190315
  Receipt Date: 20190315
  Transmission Date: 20190418
  Serious: Yes (Other)
  Sender: FDA-Public Use
  Company Number: US-ELI_LILLY_AND_COMPANY-US201903005261

PATIENT
  Sex: Male

DRUGS (7)
  1. BASAGLAR [Suspect]
     Active Substance: INSULIN GLARGINE
     Indication: TYPE 2 DIABETES MELLITUS
     Dosage: 36 IU, UNKNOWN
     Route: 065
     Dates: start: 2016
  2. BASAGLAR [Suspect]
     Active Substance: INSULIN GLARGINE
     Dosage: 36 IU, UNKNOWN
     Route: 065
     Dates: start: 2016
  3. BASAGLAR [Suspect]
     Active Substance: INSULIN GLARGINE
     Dosage: 70 IU, UNKNOWN
     Route: 065
     Dates: start: 2016
  4. BASAGLAR [Suspect]
     Active Substance: INSULIN GLARGINE
     Dosage: 70 IU, UNKNOWN
     Route: 065
     Dates: start: 2016
  5. VICODIN [Concomitant]
     Active Substance: ACETAMINOPHEN\HYDROCODONE BITARTRATE
     Indication: PAIN
  6. CHANTIX [Suspect]
     Active Substance: VARENICLINE TARTRATE
     Indication: PRODUCT USED FOR UNKNOWN INDICATION
     Dosage: UNK, UNKNOWN
     Route: 065
  7. HYDROCODONE [Concomitant]
     Active Substance: HYDROCODONE
     Indication: PAIN

REACTIONS (16)
  - Headache [Unknown]
  - Blood glucose decreased [Unknown]
  - Dyslexia [Unknown]
  - Accidental underdose [Unknown]
  - Hypoaesthesia [Unknown]
  - Poor peripheral circulation [Unknown]
  - Musculoskeletal discomfort [Unknown]
  - Mobility decreased [Unknown]
  - Asthenia [Unknown]
  - Migraine [Unknown]
  - Lower limb fracture [Unknown]
  - Injection site pain [Unknown]
  - Memory impairment [Unknown]
  - Musculoskeletal pain [Unknown]
  - Blindness [Unknown]
  - Arthritis [Unknown]

NARRATIVE: CASE EVENT DATE: 2016
